FAERS Safety Report 8913510 (Version 3)
Quarter: 2013Q2

REPORT INFORMATION
  Report Type: Spontaneous
  Country: US (occurrence: US)
  Receive Date: 20121116
  Receipt Date: 20130521
  Transmission Date: 20140414
  Serious: Yes (Hospitalization)
  Sender: FDA-Public Use
  Company Number: US-BIOGENIDEC-2012BI051969

PATIENT
  Age: 39 Year
  Sex: Female

DRUGS (2)
  1. TYSABRI [Suspect]
     Indication: MULTIPLE SCLEROSIS
     Route: 042
     Dates: start: 20120210, end: 20121102
  2. GILENYA [Concomitant]
     Indication: MULTIPLE SCLEROSIS

REACTIONS (2)
  - Sepsis [Unknown]
  - Hypersensitivity [Unknown]
